FAERS Safety Report 10175786 (Version 1)
Quarter: 2014Q2

REPORT INFORMATION
  Report Type: Spontaneous
  Country: US (occurrence: US)
  Receive Date: 20140516
  Receipt Date: 20140516
  Transmission Date: 20141212
  Serious: No
  Sender: FDA-Public Use
  Company Number: US-SHIRE-US201402229

PATIENT
  Age: 8 Year
  Sex: Male

DRUGS (3)
  1. VYVANSE [Suspect]
     Indication: PRODUCT USED FOR UNKNOWN INDICATION
     Dosage: UNK, UNKNOWN
     Route: 048
  2. VYVANSE [Suspect]
     Dosage: 70 MG, UNKNOWN
     Route: 048
  3. ZOLOFT [Concomitant]
     Indication: PRODUCT USED FOR UNKNOWN INDICATION
     Dosage: UNK, UNKNOWN
     Route: 065

REACTIONS (1)
  - Drug effect decreased [Recovered/Resolved]
